FAERS Safety Report 23920062 (Version 1)
Quarter: 2024Q2

REPORT INFORMATION
  Report Type: Spontaneous
  Country: CN (occurrence: CN)
  Receive Date: 20240530
  Receipt Date: 20240530
  Transmission Date: 20240715
  Serious: Yes (Life-Threatening, Other)
  Sender: FDA-Public Use
  Company Number: CN-BAYER-2024A078759

PATIENT
  Age: 51 Year
  Sex: Female
  Weight: 62 kg

DRUGS (1)
  1. AVELOX [Suspect]
     Active Substance: MOXIFLOXACIN HYDROCHLORIDE
     Indication: Abdominal pain
     Dosage: 1 DF, QD
     Route: 048
     Dates: start: 20240514, end: 20240514

REACTIONS (12)
  - Anaphylactic shock [Recovering/Resolving]
  - Loss of consciousness [Recovering/Resolving]
  - Amaurosis [Recovering/Resolving]
  - Discomfort [Recovering/Resolving]
  - Chest discomfort [Recovering/Resolving]
  - Dyspnoea [Recovering/Resolving]
  - Vision blurred [Recovering/Resolving]
  - Eosinophil count decreased [None]
  - Eosinophil percentage decreased [None]
  - Plateletcrit increased [None]
  - Blood immunoglobulin E increased [None]
  - Product use in unapproved indication [None]

NARRATIVE: CASE EVENT DATE: 20240514
